FAERS Safety Report 18787848 (Version 1)
Quarter: 2021Q1

REPORT INFORMATION
  Report Type: Spontaneous
  Country: US (occurrence: US)
  Receive Date: 20210126
  Receipt Date: 20210126
  Transmission Date: 20210419
  Serious: No
  Sender: FDA-Public Use
  Company Number: None

PATIENT
  Age: 43 Year
  Sex: Male
  Weight: 93.8 kg

DRUGS (8)
  1. REMDESIVIR. [Suspect]
     Active Substance: REMDESIVIR
     Indication: COVID-19
     Route: 040
     Dates: start: 20210109, end: 20210113
  2. DOXYCYCLINE 100 MG PO Q12H [Concomitant]
     Dates: start: 20210112, end: 20210113
  3. DOXYCYCLINE 100 MG IV Q12H [Concomitant]
     Dates: start: 20210110, end: 20210112
  4. ENOXAPARAIN 40 MG SQ Q24H [Concomitant]
     Dates: start: 20210109, end: 20210113
  5. CEFTRIAXONE 1 G IV Q24H [Concomitant]
     Dates: start: 20210110, end: 20210112
  6. DEXAMETHASONE 6 MG IV DAILY [Concomitant]
     Dates: start: 20210109, end: 20210113
  7. TUSSIONEX PENNKINETIC [Concomitant]
     Active Substance: CHLORPHENIRAMINE\HYDROCODONE
     Dates: start: 20210110, end: 20210112
  8. TUSSIN DM [Concomitant]
     Active Substance: DEXTROMETHORPHAN HYDROBROMIDE\GUAIFENESIN
     Dates: start: 20210109, end: 20210110

REACTIONS (2)
  - Sinus arrest [None]
  - Bradycardia [None]

NARRATIVE: CASE EVENT DATE: 20210112
